FAERS Safety Report 4805725-1 (Version None)
Quarter: 2005Q4

REPORT INFORMATION
  Report Type: 
  Country: None (occurrence: None)
  Receive Date: 20051021
  Receipt Date: 20051011
  Transmission Date: 20060501
  Serious: Yes (Other)
  Sender: FDA-Public Use
  Company Number: US-JNJFOC-20050906911

PATIENT
  Sex: Female
  Weight: 68.04 kg

DRUGS (7)
  1. REMICADE [Suspect]
     Dosage: DOSAGE RECEIVED WAS 4 VIALS.
     Route: 042
  2. METHOTREXATE [Concomitant]
  3. RELAFEN [Concomitant]
  4. NORFLEX [Concomitant]
  5. BENTYL [Concomitant]
  6. ELAVIL [Concomitant]
  7. LEVOXYL [Concomitant]

REACTIONS (2)
  - CUTANEOUS VASCULITIS [None]
  - PAIN IN EXTREMITY [None]
